FAERS Safety Report 16048767 (Version 2)
Quarter: 2019Q1

REPORT INFORMATION
  Report Type: Spontaneous
  Country: IN (occurrence: IN)
  Receive Date: 20190307
  Receipt Date: 20190325
  Transmission Date: 20190418
  Serious: Yes (Hospitalization)
  Sender: FDA-Public Use
  Company Number: IN-PFIZER INC-2018528906

PATIENT
  Age: 52 Year
  Sex: Male

DRUGS (1)
  1. SUTENT [Suspect]
     Active Substance: SUNITINIB MALATE
     Indication: METASTATIC RENAL CELL CARCINOMA
     Dosage: 50 MG, 1X/DAY(2 WEEKS ON AND 1 WEEK OFF)
     Route: 048
     Dates: start: 20181222

REACTIONS (7)
  - Discomfort [Unknown]
  - Stomatitis [Unknown]
  - Decreased appetite [Unknown]
  - Asthenia [Unknown]
  - Gastritis [Unknown]
  - Dehydration [Unknown]
  - Vomiting [Unknown]
